FAERS Safety Report 18024145 (Version 1)
Quarter: 2020Q3

REPORT INFORMATION
  Report Type: Report from Study
  Country: CO (occurrence: CO)
  Receive Date: 20200714
  Receipt Date: 20200714
  Transmission Date: 20201103
  Serious: Yes (Death, Hospitalization)
  Sender: FDA-Public Use
  Company Number: CO-ACTELION-A-NJ2020-206929

PATIENT
  Age: 50 Year
  Sex: Female

DRUGS (1)
  1. VENTAVIS [Suspect]
     Active Substance: ILOPROST
     Indication: PULMONARY ARTERIAL HYPERTENSION
     Dosage: 5 MCG, 6 ID
     Route: 055
     Dates: start: 20171114, end: 20200622

REACTIONS (2)
  - Oedema peripheral [Not Recovered/Not Resolved]
  - Viral infection [Fatal]

NARRATIVE: CASE EVENT DATE: 20200622
